FAERS Safety Report 21809720 (Version 1)
Quarter: 2023Q1

REPORT INFORMATION
  Report Type: Spontaneous
  Country: FR (occurrence: FR)
  Receive Date: 20230103
  Receipt Date: 20230103
  Transmission Date: 20230418
  Serious: No
  Sender: FDA-Public Use
  Company Number: FR-ALKEM LABORATORIES LIMITED-FR-ALKEM-2022-14180

PATIENT
  Age: 27 Month
  Sex: Female
  Weight: 3.07 kg

DRUGS (5)
  1. SIROLIMUS [Suspect]
     Active Substance: SIROLIMUS
     Indication: Hyperinsulinism
     Dosage: 0.5-1MG/SQ.M (INITIAL DOSE) SYRUP IN A CONCENTRATION OF 1 MG/ML
     Route: 065
  2. SIROLIMUS [Suspect]
     Active Substance: SIROLIMUS
     Dosage: 3.7 MILLIGRAM/SQ. METER QD (MAXIMAL DOSAGE) TROUGH LEVEL-4.4 -23.5 MICROG/L
     Route: 065
  3. DIAZOXIDE [Concomitant]
     Active Substance: DIAZOXIDE
     Indication: Hyperinsulinism
     Dosage: 6 MILLIGRAM/KILOGRAM, QD
     Route: 048
  4. OCTREOTIDE [Concomitant]
     Active Substance: OCTREOTIDE
     Indication: Hyperinsulinism
     Dosage: 23 MICROGRAM/KILOGRAM, QD
     Route: 065
  5. DEXTROSE [Concomitant]
     Active Substance: DEXTROSE
     Indication: Hyperinsulinism
     Dosage: 6 MILLIGRAM/KILOGRAM PER MINUTE
     Route: 065

REACTIONS (1)
  - Drug ineffective for unapproved indication [Unknown]
